FAERS Safety Report 9656024 (Version 1)
Quarter: 2013Q4

REPORT INFORMATION
  Report Type: Spontaneous
  Country: CZ (occurrence: CZ)
  Receive Date: 20131030
  Receipt Date: 20131030
  Transmission Date: 20140711
  Serious: Yes (Hospitalization)
  Sender: FDA-Public Use
  Company Number: CZ-JNJFOC-20131015387

PATIENT
  Age: 68 Year
  Sex: Female
  Weight: 73 kg

DRUGS (8)
  1. DOXORUBICIN HYDROCHLORIDE [Suspect]
     Indication: OVARIAN CANCER
     Route: 042
     Dates: start: 20130819
  2. EC145 [Suspect]
     Indication: OVARIAN CANCER
     Dosage: PR-2
     Route: 042
     Dates: start: 20130819
  3. PLACEBO [Suspect]
     Indication: OVARIAN CANCER
     Route: 042
     Dates: start: 20130819
  4. EC20 [Suspect]
     Indication: COMPUTERISED TOMOGRAM
     Route: 042
     Dates: start: 20130807, end: 20130807
  5. FOLIC ACID [Suspect]
     Indication: SINGLE PHOTON EMISSION COMPUTERISED TOMOGRAM
     Route: 042
     Dates: start: 20130807, end: 20130807
  6. LORAZEPAM [Concomitant]
     Indication: PALPITATIONS
     Dates: start: 2007
  7. THIAMINE HYDROCHLORIDE [Concomitant]
     Indication: PRODUCT USED FOR UNKNOWN INDICATION
     Dates: start: 2005
  8. MIRTAZAPINE [Concomitant]
     Indication: DEPRESSION
     Dates: start: 2011

REACTIONS (2)
  - Abdominal pain [Recovered/Resolved]
  - Vomiting [Unknown]
